FAERS Safety Report 9690921 (Version 3)
Quarter: 2014Q1

REPORT INFORMATION
  Report Type: Spontaneous
  Country: US (occurrence: US)
  Receive Date: 20131115
  Receipt Date: 20140131
  Transmission Date: 20141002
  Serious: Yes (Other)
  Sender: FDA-Public Use
  Company Number: US-PFIZER INC-2013326307

PATIENT
  Sex: Female
  Weight: 72.56 kg

DRUGS (6)
  1. LYRICA [Suspect]
     Indication: NERVE INJURY
     Dosage: 100 MG, 3X/DAY
     Route: 048
     Dates: start: 2006
  2. METHADONE [Concomitant]
     Dosage: 20 MG (AS 2 TABLETS OF 10MG), 2X/DAY
  3. CYMBALTA [Concomitant]
     Dosage: 60 MG, 1X/DAY
     Route: 048
  4. ZONISAMIDE [Concomitant]
     Dosage: 50 MG, 1X/DAY
  5. METAXALONE [Concomitant]
     Indication: MUSCLE SPASMS
     Dosage: 800 MG, AS NEEDED
  6. AMITRIPTYLINE [Concomitant]
     Dosage: 20 MG (AS 2 TABLETS OF 10MG), 1X/DAY (AT BED TIME)
     Route: 048

REACTIONS (3)
  - Myelitis transverse [Not Recovered/Not Resolved]
  - Type 2 diabetes mellitus [Not Recovered/Not Resolved]
  - Neuropathy peripheral [Not Recovered/Not Resolved]
